FAERS Safety Report 19056419 (Version 1)
Quarter: 2021Q1

REPORT INFORMATION
  Report Type: Spontaneous
  Country: US (occurrence: US)
  Receive Date: 20210324
  Receipt Date: 20210324
  Transmission Date: 20210420
  Serious: Yes (Hospitalization)
  Sender: FDA-Public Use
  Company Number: US-CELGENEUS-USA-20210304892

PATIENT
  Age: 58 Year
  Sex: Female
  Weight: 77.07 kg

DRUGS (17)
  1. THALOMID [Suspect]
     Active Substance: THALIDOMIDE
     Dosage: 50 MG?250 MG
     Route: 048
     Dates: start: 201308
  2. THALOMID [Suspect]
     Active Substance: THALIDOMIDE
     Dosage: 250 MILLIGRAM
     Route: 048
     Dates: start: 201312
  3. THALOMID [Suspect]
     Active Substance: THALIDOMIDE
     Dosage: 50 MILLIGRAM
     Route: 048
     Dates: start: 202103
  4. THALOMID [Suspect]
     Active Substance: THALIDOMIDE
     Dosage: 250 MILLIGRAM
     Route: 048
     Dates: start: 201211
  5. THALOMID [Suspect]
     Active Substance: THALIDOMIDE
     Dosage: 50 MG?150 MG
     Route: 048
     Dates: start: 201404
  6. THALOMID [Suspect]
     Active Substance: THALIDOMIDE
     Indication: PLASMA CELL MYELOMA
     Dosage: 100 MILLIGRAM
     Route: 048
     Dates: start: 200810
  7. THALOMID [Suspect]
     Active Substance: THALIDOMIDE
     Dosage: 50 MG?150 MG
     Route: 048
     Dates: start: 20170728
  8. ASPIRIN. [Concomitant]
     Active Substance: ASPIRIN
     Indication: PRODUCT USED FOR UNKNOWN INDICATION
     Route: 065
  9. AMOXICILLIN. [Concomitant]
     Active Substance: AMOXICILLIN
     Indication: PRODUCT USED FOR UNKNOWN INDICATION
     Route: 065
  10. VANCOMYCIN [Concomitant]
     Active Substance: VANCOMYCIN
     Indication: PRODUCT USED FOR UNKNOWN INDICATION
     Route: 065
  11. TYLENOL [Concomitant]
     Active Substance: ACETAMINOPHEN
     Indication: PRODUCT USED FOR UNKNOWN INDICATION
     Route: 065
  12. THALOMID [Suspect]
     Active Substance: THALIDOMIDE
     Dosage: 250 MILLIGRAM
     Route: 048
     Dates: start: 201303
  13. THALOMID [Suspect]
     Active Substance: THALIDOMIDE
     Dosage: 250 MILLIGRAM
     Route: 048
     Dates: start: 201109
  14. THALOMID [Suspect]
     Active Substance: THALIDOMIDE
     Dosage: 250 MILLIGRAM
     Route: 048
     Dates: start: 201207
  15. VENTOLIN HFA [Concomitant]
     Active Substance: ALBUTEROL SULFATE
     Indication: PRODUCT USED FOR UNKNOWN INDICATION
     Route: 045
  16. THALOMID [Suspect]
     Active Substance: THALIDOMIDE
     Dosage: 100 MG?50 MG
     Route: 048
     Dates: start: 201103
  17. GABAPENTIN. [Concomitant]
     Active Substance: GABAPENTIN
     Indication: PRODUCT USED FOR UNKNOWN INDICATION
     Route: 065

REACTIONS (1)
  - Chest pain [Recovered/Resolved]

NARRATIVE: CASE EVENT DATE: 20210305
